FAERS Safety Report 7332300-X (Version None)
Quarter: 2011Q1

REPORT INFORMATION
  Report Type: 
  Country: None (occurrence: None)
  Receive Date: 20110304
  Receipt Date: 20110225
  Transmission Date: 20110831
  Serious: Yes (Death)
  Sender: FDA-Public Use
  Company Number: JP-ASTRAZENECA-2011SE11146

PATIENT
  Age: 36 Year
  Sex: Female

DRUGS (9)
  1. SEROQUEL [Suspect]
     Route: 048
     Dates: start: 20090704, end: 20100122
  2. LEXOTAN [Concomitant]
     Route: 048
     Dates: start: 20090620
  3. SEROQUEL [Suspect]
     Route: 048
     Dates: start: 20100123
  4. SENNOSIDE [Concomitant]
     Route: 048
     Dates: start: 20090620
  5. MAGLAX [Concomitant]
     Route: 048
     Dates: start: 20090620
  6. FLUNITRAZEPAM [Concomitant]
     Route: 048
     Dates: start: 20090620
  7. SEVEN EP [Concomitant]
     Route: 048
     Dates: start: 20090620
  8. SEROQUEL [Suspect]
     Indication: DYSTHYMIC DISORDER
     Route: 048
     Dates: start: 20090123
  9. SEROQUEL [Suspect]
     Dosage: MORE THAN 200 TABLETS (THERE WAS A POSSIBILITY THAT PATIENT STORED OTHER DRUGS PRESCRIBED BEFORE)
     Route: 048

REACTIONS (2)
  - OVERDOSE [None]
  - COMPLETED SUICIDE [None]
